FAERS Safety Report 8651266 (Version 3)
Quarter: 2012Q4

REPORT INFORMATION
  Report Type: 
  Country: US (occurrence: US)
  Receive Date: 20120705
  Receipt Date: 20120828
  Transmission Date: 20130627
  Serious: Yes (Hospitalization)
  Sender: FDA-Public Use
  Company Number: US-GILEAD-2012-0057217

PATIENT
  Sex: Female

DRUGS (2)
  1. LETAIRIS [Suspect]
     Indication: PULMONARY HYPERTENSION
     Dosage: 5 mg, UNK
     Route: 048
     Dates: start: 20120601
  2. LETAIRIS [Suspect]
     Indication: SARCOIDOSIS

REACTIONS (6)
  - Pneumonia [Unknown]
  - Ocular icterus [Unknown]
  - Eye discharge [Unknown]
  - Vision blurred [Unknown]
  - Face oedema [Unknown]
  - Fluid retention [Unknown]
